FAERS Safety Report 7444914-7 (Version None)
Quarter: 2011Q2

REPORT INFORMATION
  Report Type: 
  Country: None (occurrence: None)
  Receive Date: 20110427
  Receipt Date: 20110427
  Transmission Date: 20111010
  Serious: Yes (Hospitalization)
  Sender: FDA-Public Use
  Company Number: None

PATIENT
  Age: 59 Year
  Sex: Female
  Weight: 83.4619 kg

DRUGS (1)
  1. CIPROFLOXACIN [Suspect]
     Indication: BRONCHITIS
     Dosage: 1 TABLET TWICE DAILY PO
     Route: 048
     Dates: start: 20110414, end: 20110420

REACTIONS (15)
  - PYREXIA [None]
  - WEIGHT INCREASED [None]
  - PAIN IN EXTREMITY [None]
  - NECK PAIN [None]
  - OEDEMA PERIPHERAL [None]
  - HEADACHE [None]
  - INSOMNIA [None]
  - DISTURBANCE IN ATTENTION [None]
  - PAIN [None]
  - NAUSEA [None]
  - ARTHRALGIA [None]
  - IMPAIRED WORK ABILITY [None]
  - DYSPNOEA [None]
  - RASH [None]
  - PRURITUS [None]
